FAERS Safety Report 14663619 (Version 1)
Quarter: 2018Q1

REPORT INFORMATION
  Report Type: Spontaneous
  Country: SG (occurrence: SG)
  Receive Date: 20180321
  Receipt Date: 20180321
  Transmission Date: 20180509
  Serious: Yes (Other)
  Sender: FDA-Public Use
  Company Number: SG-REGENERON PHARMACEUTICALS, INC.-2018-18765

PATIENT

DRUGS (2)
  1. EYLEA [Suspect]
     Active Substance: AFLIBERCEPT
     Indication: NEOVASCULAR AGE-RELATED MACULAR DEGENERATION
     Dosage: 2 MG,  3 MONTHLY LOADING INJECTION, THEN EVERY 2 MONTH INJECTION
     Route: 031
     Dates: start: 201402, end: 201502
  2. EYLEA [Suspect]
     Active Substance: AFLIBERCEPT
     Indication: POLYPOIDAL CHOROIDAL VASCULOPATHY

REACTIONS (2)
  - Subretinal fluid [Unknown]
  - Off label use [Unknown]

NARRATIVE: CASE EVENT DATE: 201404
